FAERS Safety Report 24428000 (Version 4)
Quarter: 2025Q3

REPORT INFORMATION
  Report Type: Spontaneous
  Country: EU (occurrence: EU)
  Receive Date: 20241011
  Receipt Date: 20250803
  Transmission Date: 20251020
  Serious: Yes (Hospitalization, Other)
  Sender: ALEXION PHARMACEUTICALS
  Company Number: EU-ASTRAZENECA-202410EEA005882FR

PATIENT
  Sex: Female

DRUGS (3)
  1. ULTOMIRIS [Suspect]
     Active Substance: RAVULIZUMAB-CWVZ
     Indication: Myasthenia gravis
     Route: 065
  2. ULTOMIRIS [Suspect]
     Active Substance: RAVULIZUMAB-CWVZ
     Route: 065
  3. ULTOMIRIS [Suspect]
     Active Substance: RAVULIZUMAB-CWVZ
     Route: 065

REACTIONS (7)
  - Myasthenia gravis [Recovered/Resolved]
  - Drug ineffective [Unknown]
  - Aspiration [Unknown]
  - Total complement activity decreased [Unknown]
  - Complement factor C4 decreased [Unknown]
  - Complement factor C3 decreased [Unknown]
  - Aphonia [Unknown]

NARRATIVE: CASE EVENT DATE: 20240801
